FAERS Safety Report 5529789-5 (Version None)
Quarter: 2007Q4

REPORT INFORMATION
  Report Type: 
  Country: None (occurrence: None)
  Receive Date: 20071129
  Receipt Date: 20070327
  Transmission Date: 20080405
  Serious: No
  Sender: FDA-Public Use
  Company Number: US-ABBOTT-07P-163-0363635-00

PATIENT
  Sex: Female
  Weight: 95.5 kg

DRUGS (1)
  1. MERIDIA [Suspect]
     Indication: WEIGHT CONTROL
     Route: 048
     Dates: start: 20070301, end: 20070301

REACTIONS (3)
  - FEAR [None]
  - FEELING ABNORMAL [None]
  - HEAD DISCOMFORT [None]
